FAERS Safety Report 14269888 (Version 2)
Quarter: 2018Q1

REPORT INFORMATION
  Report Type: Spontaneous
  Country: DE (occurrence: DE)
  Receive Date: 20171211
  Receipt Date: 20180111
  Transmission Date: 20180508
  Serious: Yes (Hospitalization)
  Sender: FDA-Public Use
  Company Number: DE-OTSUKA-2015_014202

PATIENT
  Age: 50 Year
  Sex: Male

DRUGS (13)
  1. ARIPIPRAZOLE. [Suspect]
     Active Substance: ARIPIPRAZOLE
     Dosage: DAILY DOSE: 15 MG MILLIGRAM(S) EVERY DAY
     Route: 048
     Dates: start: 20150528, end: 20150817
  2. ARIPIPRAZOLE. [Suspect]
     Active Substance: ARIPIPRAZOLE
     Dosage: 5 MG, QD
     Route: 048
     Dates: start: 20150827, end: 20150830
  3. VALSARTAN. [Concomitant]
     Active Substance: VALSARTAN
     Indication: PRODUCT USED FOR UNKNOWN INDICATION
     Dosage: DAILY DOSE: 80 MG MILLIGRAM(S) EVERY DAY
     Route: 048
     Dates: start: 201505
  4. ARIPIPRAZOLE. [Suspect]
     Active Substance: ARIPIPRAZOLE
     Dosage: DAILY DOSE: 7.5 MG MILLIGRAM(S) EVERY DAY
     Route: 048
     Dates: start: 20150520, end: 20150521
  5. ARIPIPRAZOLE. [Suspect]
     Active Substance: ARIPIPRAZOLE
     Dosage: 10 MG, QD
     Route: 048
     Dates: start: 20150818, end: 20150826
  6. ARIPIPRAZOLE. [Suspect]
     Active Substance: ARIPIPRAZOLE
     Dosage: 2.5 MG, QD
     Route: 048
     Dates: start: 20150831, end: 20150831
  7. QUETIAPIN [Concomitant]
     Active Substance: QUETIAPINE
     Indication: PRODUCT USED FOR UNKNOWN INDICATION
     Dosage: 150 MG, QD
     Route: 065
  8. MIRTAZAPIN [Concomitant]
     Active Substance: MIRTAZAPINE
     Indication: PRODUCT USED FOR UNKNOWN INDICATION
     Dosage: DAILY DOSE: 30 MG MILLIGRAM(S) EVERY DAY
     Route: 048
     Dates: start: 201506, end: 20150825
  9. ARIPIPRAZOLE. [Suspect]
     Active Substance: ARIPIPRAZOLE
     Indication: DELUSIONAL DISORDER, UNSPECIFIED TYPE
     Dosage: DAILY DOSE: 5 MG MILLIGRAM(S) EVERY DAY
     Route: 048
     Dates: start: 20150519
  10. QUETIAPIN [Concomitant]
     Active Substance: QUETIAPINE
     Dosage: DAILY DOSE: 150 MG MILLIGRAM(S) EVERY DAY
     Route: 065
  11. MIRTAZAPIN [Concomitant]
     Active Substance: MIRTAZAPINE
     Dosage: DAILY DOSE: 45 MG MILLIGRAM(S) EVERY DAY
     Route: 048
     Dates: start: 20150826
  12. ARIPIPRAZOLE. [Suspect]
     Active Substance: ARIPIPRAZOLE
     Dosage: DAILY DOSE: 10 MG MILLIGRAM(S) EVERY DAY
     Route: 048
     Dates: start: 20150522, end: 20150527
  13. TESTOGEL [Concomitant]
     Active Substance: TESTOSTERONE
     Indication: PRODUCT USED FOR UNKNOWN INDICATION
     Dosage: DAILY DOSE: 50 MG MILLIGRAM(S) EVERY DAY
     Route: 048
     Dates: start: 20150907

REACTIONS (3)
  - Akathisia [Recovered/Resolved]
  - Product use in unapproved indication [Unknown]
  - Off label use [Unknown]

NARRATIVE: CASE EVENT DATE: 20150724
